FAERS Safety Report 13237902 (Version 1)
Quarter: 2017Q1

REPORT INFORMATION
  Report Type: Spontaneous
  Country: CA (occurrence: CA)
  Receive Date: 20170216
  Receipt Date: 20170216
  Transmission Date: 20170428
  Serious: Yes (Life-Threatening, Hospitalization, Other)
  Sender: FDA-Public Use
  Company Number: CA-TEVA-739280ACC

PATIENT
  Age: 57 Year
  Sex: Male
  Weight: 90 kg

DRUGS (2)
  1. OLANZAPINE. [Suspect]
     Active Substance: OLANZAPINE
     Indication: SCHIZOPHRENIA
     Dosage: 12.5 MILLIGRAM DAILY;
     Route: 048
  2. ACETAMINOPHEN. [Concomitant]
     Active Substance: ACETAMINOPHEN

REACTIONS (14)
  - Cardiac arrest [Unknown]
  - Gastrointestinal ischaemia [Unknown]
  - Haematemesis [Unknown]
  - Haemorrhage [Unknown]
  - Occult blood positive [Unknown]
  - Transfusion [Unknown]
  - Syncope [Unknown]
  - Duodenal ulcer [Unknown]
  - Faeces discoloured [Unknown]
  - Therapeutic embolisation [Unknown]
  - Nausea [Unknown]
  - Dizziness [Unknown]
  - Haemodynamic instability [Unknown]
  - Haemoglobin decreased [Unknown]
